FAERS Safety Report 23245784 (Version 1)
Quarter: 2023Q4

REPORT INFORMATION
  Report Type: Spontaneous
  Country: IT (occurrence: IT)
  Receive Date: 20231130
  Receipt Date: 20231130
  Transmission Date: 20240110
  Serious: Yes (Other)
  Sender: FDA-Public Use
  Company Number: IT-MYLANLABS-2023M1120746

PATIENT
  Sex: Female

DRUGS (1)
  1. VALACYCLOVIR HYDROCHLORIDE [Suspect]
     Active Substance: VALACYCLOVIR HYDROCHLORIDE
     Indication: Cytomegalovirus infection
     Dosage: UNK
     Route: 065

REACTIONS (4)
  - Nephropathy toxic [Recovered/Resolved]
  - Blood creatinine increased [Recovered/Resolved]
  - Off label use [Unknown]
  - Maternal exposure during pregnancy [Unknown]
